FAERS Safety Report 7734463-0 (Version None)
Quarter: 2011Q3

REPORT INFORMATION
  Report Type: 
  Country: None (occurrence: None)
  Receive Date: 20110907
  Receipt Date: 20110826
  Transmission Date: 20111222
  Serious: Yes (Hospitalization, Other)
  Sender: FDA-Public Use
  Company Number: JP-PFIZER INC-2011194268

PATIENT
  Age: 68 Year
  Sex: Male
  Weight: 57.5 kg

DRUGS (30)
  1. DIFLUCAN [Concomitant]
     Dosage: 100 MG, UNK
     Route: 048
     Dates: start: 20110425
  2. LENDORMIN [Concomitant]
     Dosage: 0.25 MG, UNK
     Route: 048
     Dates: start: 20110425
  3. TARGOCID [Concomitant]
     Dosage: 400 MG, UNK
     Route: 041
     Dates: start: 20110804, end: 20110812
  4. METHOTREXATE SODIUM [Suspect]
     Indication: ADULT T-CELL LYMPHOMA/LEUKAEMIA
     Dosage: 15 MG X 1/8 WEEK
     Dates: start: 20110531
  5. KW-0761 [Suspect]
     Indication: ADULT T-CELL LYMPHOMA/LEUKAEMIA
     Dosage: 1.0 MG/KG X 1/2 WEEK
     Route: 041
     Dates: start: 20110426, end: 20110727
  6. SULFAMETHOXAZOLE [Concomitant]
     Dosage: 1 DF
     Route: 048
     Dates: start: 20110425
  7. DOXORUBICIN HYDROCHLORIDE [Suspect]
     Dosage: 30 MG/M2 X 1/4WEEK
     Route: 041
     Dates: start: 20110502
  8. CYTARABINE [Suspect]
     Indication: ADULT T-CELL LYMPHOMA/LEUKAEMIA
     Dosage: 40 MG X 1/8 WEEK
     Dates: start: 20110531
  9. MAXIPIME [Concomitant]
     Dosage: 4 G, UNK
     Route: 041
     Dates: start: 20110804, end: 20110812
  10. HICEE [Concomitant]
     Dosage: 1500 MG, UNK
     Route: 048
     Dates: start: 20110808
  11. MYSER [Concomitant]
     Dosage: UNK
     Dates: start: 20110624
  12. POSTERISAN [Concomitant]
     Dosage: UNK
     Dates: start: 20110517
  13. ASPIRIN [Concomitant]
     Dosage: 100 MG, UNK
     Route: 048
     Dates: start: 20110524
  14. ADONA [Concomitant]
     Dosage: 90 MG, UNK
     Route: 048
     Dates: start: 20110808
  15. EPINASTINE HYDROCHLORIDE [Concomitant]
     Dosage: 500 ML, UNK
     Route: 048
     Dates: start: 20110814
  16. DOXORUBICIN HYDROCHLORIDE [Suspect]
     Indication: ADULT T-CELL LYMPHOMA/LEUKAEMIA
     Dosage: 40 MG/M2 X 1/4WEEK
     Route: 041
     Dates: start: 20110425
  17. ETOPOSIDE [Suspect]
     Indication: ADULT T-CELL LYMPHOMA/LEUKAEMIA
     Dosage: 100 MG/M2 X 1/4 WEEK
     Route: 041
     Dates: start: 20110509
  18. PREDNISOLONE SODIUM SUCCINATE INJ [Suspect]
     Indication: ADULT T-CELL LYMPHOMA/LEUKAEMIA
     Dosage: 10 MG X 1/8 WEEK
     Dates: start: 20110531
  19. KETOPROFEN [Concomitant]
     Dosage: UNK
     Dates: start: 20110807
  20. PARAPLATIN [Suspect]
     Indication: ADULT T-CELL LYMPHOMA/LEUKAEMIA
     Dosage: 250 MG/M2 X 1/4 WEEK
     Route: 041
     Dates: start: 20110509
  21. OMEPRAZOLE [Concomitant]
     Dosage: 20 MG, UNK
     Route: 048
     Dates: start: 20110425
  22. GLUCONSAN K [Concomitant]
     Dosage: 500 ML, UNK
     Route: 048
     Dates: start: 20110817
  23. VINCRISTINE SULFATE [Suspect]
     Indication: ADULT T-CELL LYMPHOMA/LEUKAEMIA
     Dosage: 1 MG/M2 X 1/4 WEEK
     Route: 041
     Dates: start: 20110425
  24. CYCLOPHOSPHAMIDE [Suspect]
     Indication: ADULT T-CELL LYMPHOMA/LEUKAEMIA
     Dosage: 350 MG/M2 X 1/4 WEEK
     Route: 041
     Dates: start: 20110425
  25. PREDNISOLONE [Suspect]
     Indication: ADULT T-CELL LYMPHOMA/LEUKAEMIA
     Dosage: 40 MG/M2 X 1/4 WEEK
     Route: 048
     Dates: start: 20110425
  26. RANIMUSTINE [Suspect]
     Indication: ADULT T-CELL LYMPHOMA/LEUKAEMIA
     Dosage: 60 MG/M2 X 1/4 WEEK
     Route: 041
     Dates: start: 20110502
  27. FILDESIN [Suspect]
     Indication: ADULT T-CELL LYMPHOMA/LEUKAEMIA
     Dosage: 2.4 MG/M2 X 1/4 WEEK
     Route: 041
     Dates: start: 20110509
  28. MAGMITT [Concomitant]
     Dosage: 990 MG, UNK
     Route: 048
     Dates: start: 20110425
  29. PURSENNID [Concomitant]
     Dosage: 24 MG, UNK
     Route: 048
     Dates: start: 20110705
  30. SLOW-K [Concomitant]
     Dosage: 3600 MG, UNK
     Route: 048
     Dates: start: 20110815

REACTIONS (1)
  - ENCEPHALITIS VIRAL [None]
